FAERS Safety Report 8308002-X (Version None)
Quarter: 2012Q2

REPORT INFORMATION
  Report Type: 
  Country: None (occurrence: None)
  Receive Date: 20120424
  Receipt Date: 20120417
  Transmission Date: 20120825
  Serious: Yes (Other)
  Sender: FDA-Public Use
  Company Number: JP-GLAXOSMITHKLINE-B0796972A

PATIENT
  Sex: Male

DRUGS (11)
  1. DOGMATYL [Concomitant]
     Dosage: 150MG PER DAY
     Route: 048
  2. HALCION [Concomitant]
     Dosage: .25MG PER DAY
     Route: 048
  3. NITRAZEPAM [Concomitant]
     Dosage: 5MG PER DAY
     Route: 048
  4. LITHIUM CARBONATE [Concomitant]
     Indication: BIPOLAR DISORDER
     Dosage: 1600MG PER DAY
     Route: 048
  5. LEXOTAN [Concomitant]
     Indication: BIPOLAR DISORDER
     Dosage: 45MG PER DAY
     Route: 048
  6. SILECE [Concomitant]
     Dosage: 2MG PER DAY
     Route: 048
  7. LENDORMIN [Concomitant]
     Dosage: .25MG PER DAY
     Route: 048
  8. LAMICTAL [Suspect]
     Indication: BIPOLAR DISORDER
     Dosage: 25MG ALTERNATE DAYS
     Route: 048
  9. LAMICTAL [Suspect]
     Dosage: 200MG PER DAY
     Route: 048
     Dates: start: 20111008, end: 20120106
  10. DEPAKENE [Concomitant]
     Indication: BIPOLAR DISORDER
     Dosage: 600MG PER DAY
     Route: 048
  11. LAMICTAL [Suspect]
     Dosage: 100MG PER DAY
     Route: 048
     Dates: start: 20120107, end: 20120303

REACTIONS (2)
  - MANIA [None]
  - AGGRESSION [None]
